FAERS Safety Report 6608180-4 (Version None)
Quarter: 2010Q1

REPORT INFORMATION
  Report Type: 
  Country: None (occurrence: None)
  Receive Date: 20100301
  Receipt Date: 20090507
  Transmission Date: 20100710
  Serious: No
  Sender: FDA-Public Use
  Company Number: A0783005A

PATIENT
  Age: 35 Year
  Sex: Male

DRUGS (6)
  1. ZIAGEN [Suspect]
     Indication: ACQUIRED IMMUNODEFICIENCY SYNDROME
     Dosage: 300MG TWICE PER DAY
     Route: 048
     Dates: start: 20090415
  2. NORVIR [Concomitant]
  3. PREZISTA [Concomitant]
  4. FLUCONAZOLE [Concomitant]
  5. PROTONIX [Concomitant]
  6. EPIVIR [Concomitant]

REACTIONS (3)
  - SKIN DISCOLOURATION [None]
  - SKIN EXFOLIATION [None]
  - WEIGHT DECREASED [None]
